FAERS Safety Report 15077630 (Version 1)
Quarter: 2018Q2

REPORT INFORMATION
  Report Type: Spontaneous
  Country: PL (occurrence: PL)
  Receive Date: 20180627
  Receipt Date: 20180627
  Transmission Date: 20180711
  Serious: Yes (Other)
  Sender: FDA-Public Use
  Company Number: PL-PFIZER INC-2018257659

PATIENT
  Age: 50 Year
  Sex: Female

DRUGS (6)
  1. CYTARABINE. [Suspect]
     Active Substance: CYTARABINE
     Dosage: UNK
     Route: 065
  2. IDARUBICIN HCL [Suspect]
     Active Substance: IDARUBICIN HYDROCHLORIDE
     Dosage: UNK
  3. HERCEPTIN [Suspect]
     Active Substance: TRASTUZUMAB
     Indication: BREAST CANCER
     Dosage: UNK (1 DOSE)
  4. PERJETA [Suspect]
     Active Substance: PERTUZUMAB
     Indication: BREAST CANCER
     Dosage: UNK (1 DOSE)
  5. ZOLEDRONIC ACID [Concomitant]
     Active Substance: ZOLEDRONIC ACID
  6. DOCETAXEL. [Suspect]
     Active Substance: DOCETAXEL
     Indication: BREAST CANCER
     Dosage: UNK
     Dates: end: 201706

REACTIONS (3)
  - Fatigue [Unknown]
  - Lung disorder [Unknown]
  - Nodule [Unknown]

NARRATIVE: CASE EVENT DATE: 2017
